FAERS Safety Report 4986198-5 (Version None)
Quarter: 2006Q2

REPORT INFORMATION
  Report Type: 
  Country: None (occurrence: None)
  Receive Date: 20060428
  Receipt Date: 20050912
  Transmission Date: 20061013
  Serious: Yes (Hospitalization)
  Sender: FDA-Public Use
  Company Number: NO-MERCK-0509NOR00011

PATIENT
  Age: 74 Year
  Sex: Female

DRUGS (14)
  1. VIOXX [Suspect]
     Indication: ARTHRALGIA
     Route: 048
     Dates: start: 20030401, end: 20030401
  2. VIOXX [Suspect]
     Route: 048
     Dates: start: 20030601, end: 20040901
  3. VIOXX [Suspect]
     Indication: FIBROMYALGIA
     Route: 048
     Dates: start: 20030401, end: 20030401
  4. VIOXX [Suspect]
     Route: 048
     Dates: start: 20030601, end: 20040901
  5. ISOSORBIDE MONONITRATE [Concomitant]
     Indication: ANGINA PECTORIS
     Route: 065
     Dates: start: 20030611
  6. FLUTICASONE PROPIONATE AND SALMETEROL XINAFOATE [Concomitant]
     Indication: ASTHMA
     Route: 055
     Dates: start: 20020226
  7. ACETAMINOPHEN [Concomitant]
     Indication: FIBROMYALGIA
     Route: 065
     Dates: start: 20020429
  8. ACETAMINOPHEN [Concomitant]
     Indication: POLYARTHRITIS
     Route: 065
     Dates: start: 20020429
  9. OXAZEPAM [Concomitant]
     Indication: DEPRESSION
     Route: 065
     Dates: start: 20020610
  10. OXAZEPAM [Concomitant]
     Indication: ANXIETY
     Route: 065
     Dates: start: 20020610
  11. ESOMEPRAZOLE MAGNESIUM [Concomitant]
     Indication: HIATUS HERNIA
     Route: 065
     Dates: start: 20010906
  12. ATORVASTATIN CALCIUM [Concomitant]
     Indication: HYPERCHOLESTEROLAEMIA
     Route: 065
     Dates: start: 20010814
  13. FUROSEMIDE [Concomitant]
     Indication: CARDIAC FAILURE
     Route: 065
     Dates: start: 20010814
  14. FUROSEMIDE [Concomitant]
     Indication: HYPERTENSION
     Route: 065
     Dates: start: 20010814

REACTIONS (2)
  - LACUNAR INFARCTION [None]
  - RETINAL ARTERY EMBOLISM [None]
